FAERS Safety Report 24788321 (Version 1)
Quarter: 2024Q4

REPORT INFORMATION
  Report Type: Spontaneous
  Country: GB (occurrence: GB)
  Receive Date: 20241230
  Receipt Date: 20241230
  Transmission Date: 20250115
  Serious: Yes (Other)
  Sender: UCB
  Company Number: GB-UCBSA-2024067533

PATIENT
  Sex: Male

DRUGS (1)
  1. BIMZELX [Suspect]
     Active Substance: BIMEKIZUMAB-BKZX
     Indication: Product used for unknown indication
     Dosage: UNK
     Dates: start: 2024

REACTIONS (3)
  - Diabetes mellitus inadequate control [Unknown]
  - Blood lactic acid increased [Unknown]
  - Liver function test increased [Unknown]

NARRATIVE: CASE EVENT DATE: 20240101
